FAERS Safety Report 13056270 (Version 1)
Quarter: 2016Q4

REPORT INFORMATION
  Report Type: Spontaneous
  Country: US (occurrence: US)
  Receive Date: 20161222
  Receipt Date: 20161222
  Transmission Date: 20170207
  Serious: No
  Sender: FDA-Public Use
  Company Number: US-PFIZER INC-2016577409

PATIENT
  Age: 69 Year
  Sex: Male

DRUGS (16)
  1. GABAPENTIN. [Concomitant]
     Active Substance: GABAPENTIN
     Indication: PAIN IN EXTREMITY
     Dosage: 300 MG, 2X/DAY
     Route: 048
  2. ESCITALOPRAM [Concomitant]
     Active Substance: ESCITALOPRAM OXALATE
     Dosage: 5 MG, 1X/DAY (AT BEDTIME)
  3. LIPITOR [Concomitant]
     Active Substance: ATORVASTATIN CALCIUM
     Dosage: 80 MG, 1X/DAY (AT BEDTIME)
     Route: 048
  4. FISH OIL [Concomitant]
     Active Substance: FISH OIL
     Dosage: 2000 MG, 1X/DAY [AS DIRECTED]
  5. NOVOLOG [Concomitant]
     Active Substance: INSULIN ASPART
     Dosage: 80 IU, UNK [THRU INSULIN PUMP]
  6. HYDROCHLOROTHIAZIDE AND LISINOPRIL [Concomitant]
     Active Substance: HYDROCHLOROTHIAZIDE\LISINOPRIL
     Dosage: (HYDROCHLOROTHIAZIDE: 25MG; LISINOPRIL:20 MG), 1X/DAY
  7. METOPROLOL SUCCINATE. [Concomitant]
     Active Substance: METOPROLOL SUCCINATE
     Dosage: 37.5 MG, DAILY [1 TAB IN MORNING AND 0.5 TABLET AT BEDTIME]
  8. LYRICA [Suspect]
     Active Substance: PREGABALIN
     Indication: PAIN IN EXTREMITY
     Dosage: 150 MG, 2X/DAY [3 CAPS TWO TIMES A DAY]
     Route: 048
  9. MIRALAX [Concomitant]
     Active Substance: POLYETHYLENE GLYCOL 3350
     Dosage: 17G, TWICE A DAY; ADJUST DOSAGE AS NEEDED
  10. ASPIRIN BUFFERED [Concomitant]
     Active Substance: ASPIRIN
     Dosage: [325] UNK, 1X/DAY
     Route: 048
  11. IMDUR [Concomitant]
     Active Substance: ISOSORBIDE MONONITRATE
     Dosage: 30 MG, 1X/DAY (IN THE MORNING)
  12. METFORMIN [Concomitant]
     Active Substance: METFORMIN HYDROCHLORIDE
     Dosage: 1000 MG, DAILY
  13. AMMONIUM LACTATE. [Concomitant]
     Active Substance: AMMONIUM LACTATE
     Dosage: UNK UNK, AS NEEDED (1 APP 2 TIMES A DAY)
     Route: 061
  14. COLACE [Concomitant]
     Active Substance: DOCUSATE SODIUM
     Dosage: 100 MG, 1 CAPSULE 2 TIMES A DAY AS NEEDED
  15. LAMOTRIGINE. [Concomitant]
     Active Substance: LAMOTRIGINE
     Dosage: 150 MG, 1X/DAY (AT BEDTIME)
  16. LEVEMIR [Concomitant]
     Active Substance: INSULIN DETEMIR
     Dosage: 35 IU, ONCE A DAY AT BEDTIME INCASE OF PUMPU FAILURE [PRN IF PUMP FAILS]

REACTIONS (9)
  - Neck pain [Unknown]
  - Fatigue [Unknown]
  - Back pain [Unknown]
  - Urinary incontinence [Unknown]
  - Arthralgia [Unknown]
  - Tandem gait test abnormal [Unknown]
  - Dysarthria [Unknown]
  - Myalgia [Unknown]
  - Sensory disturbance [Unknown]
